FAERS Safety Report 7907468-4 (Version None)
Quarter: 2011Q4

REPORT INFORMATION
  Report Type: 
  Country: None (occurrence: None)
  Receive Date: 20111110
  Receipt Date: 20111104
  Transmission Date: 20120403
  Serious: Yes (Other)
  Sender: FDA-Public Use
  Company Number: US-ELI_LILLY_AND_COMPANY-US201111002445

PATIENT
  Sex: Male

DRUGS (4)
  1. ASPIRIN [Concomitant]
     Dosage: 325 MG, QD
  2. EFFIENT [Suspect]
     Indication: STENT PLACEMENT
     Dosage: 10 MG, QD
     Dates: start: 20101015, end: 20111015
  3. EFFIENT [Suspect]
     Dosage: 10 MG, UNK
     Dates: start: 20110101
  4. NITRO                              /00003201/ [Concomitant]

REACTIONS (2)
  - PARAESTHESIA [None]
  - STENT EMBOLISATION [None]
